FAERS Safety Report 4373358-X (Version None)
Quarter: 2004Q2

REPORT INFORMATION
  Report Type: 
  Country: None (occurrence: None)
  Receive Date: 20040603
  Receipt Date: 20040525
  Transmission Date: 20050107
  Serious: No
  Sender: FDA-Public Use
  Company Number: 2004UW06535

PATIENT
  Age: 62 Year
  Sex: Female
  Weight: 94.8018 kg

DRUGS (4)
  1. CRESTOR [Suspect]
     Indication: HYPERCHOLESTEROLAEMIA
     Dosage: 10 MG PO
     Route: 048
  2. CATAPRES [Concomitant]
  3. DIAZIDE [Concomitant]
  4. TOPROL-XL [Concomitant]

REACTIONS (1)
  - CHILLS [None]
